FAERS Safety Report 5326914-6 (Version None)
Quarter: 2007Q2

REPORT INFORMATION
  Report Type: 
  Country: None (occurrence: None)
  Receive Date: 20070507
  Receipt Date: 20070424
  Transmission Date: 20071010
  Serious: Yes (Other)
  Sender: FDA-Public Use
  Company Number: 2007318185

PATIENT

DRUGS (1)
  1. BENADRYL [Suspect]
     Dosage: 2 CHILDREN'S FASTMEALTS, ORAL
     Route: 048
     Dates: start: 20070412

REACTIONS (3)
  - ANAPHYLACTIC REACTION [None]
  - COUGH [None]
  - VOMITING [None]
